FAERS Safety Report 9242412 (Version 1)
Quarter: 2013Q2

REPORT INFORMATION
  Report Type: Spontaneous
  Country: US (occurrence: US)
  Receive Date: 20130419
  Receipt Date: 20130419
  Transmission Date: 20140414
  Serious: No
  Sender: FDA-Public Use
  Company Number: US-PFIZER INC-2013120694

PATIENT
  Sex: Female
  Weight: 58.96 kg

DRUGS (2)
  1. REVATIO [Suspect]
     Indication: SCLERODERMA
     Dosage: UNK, 3X/DAY
  2. REVATIO [Suspect]
     Indication: POOR PERIPHERAL CIRCULATION

REACTIONS (3)
  - Off label use [Unknown]
  - Skin ulcer [Not Recovered/Not Resolved]
  - Pain in extremity [Not Recovered/Not Resolved]
